FAERS Safety Report 21074530 (Version 1)
Quarter: 2022Q3

REPORT INFORMATION
  Report Type: Spontaneous
  Country: US (occurrence: US)
  Receive Date: 20220713
  Receipt Date: 20220713
  Transmission Date: 20221026
  Serious: Yes (Other)
  Sender: FDA-Public Use
  Company Number: US-SA-SAC20220708000947

PATIENT
  Age: 56 Year
  Sex: Male

DRUGS (1)
  1. ZANTAC [Suspect]
     Active Substance: RANITIDINE HYDROCHLORIDE
     Indication: Dyspepsia
     Dosage: 163 MG, QD
     Dates: start: 198601, end: 201912

REACTIONS (2)
  - Prostate cancer stage IV [Unknown]
  - Skin cancer [Unknown]

NARRATIVE: CASE EVENT DATE: 20040201
